FAERS Safety Report 6930687-0 (Version None)
Quarter: 2010Q3

REPORT INFORMATION
  Report Type: 
  Country: None (occurrence: None)
  Receive Date: 20100813
  Receipt Date: 20100730
  Transmission Date: 20110219
  Serious: Yes (Hospitalization)
  Sender: FDA-Public Use
  Company Number: 1000014195

PATIENT
  Age: 85 Year
  Sex: Male
  Weight: 75 kg

DRUGS (8)
  1. MEMANTINE HCL [Suspect]
     Indication: DEMENTIA ALZHEIMER'S TYPE
     Dosage: 20 MG (10 MG,2 IN 1 D),ORAL
     Route: 048
     Dates: start: 20060315
  2. TRANDOLAPRIL [Concomitant]
  3. FUROSEMIDE (TABLETS) [Concomitant]
  4. ALLOPURINOL [Concomitant]
  5. DIFFU K (TABLETS) [Concomitant]
  6. XYZALL (TABLETS) [Concomitant]
  7. TADENAN (TABLETS) [Concomitant]
  8. SINTROM [Concomitant]

REACTIONS (2)
  - HICCUPS [None]
  - NO THERAPEUTIC RESPONSE [None]
